FAERS Safety Report 5453546-1 (Version None)
Quarter: 2007Q3

REPORT INFORMATION
  Report Type: 
  Country: None (occurrence: None)
  Receive Date: 20070913
  Receipt Date: 20070831
  Transmission Date: 20080115
  Serious: Yes (Life-Threatening, Other)
  Sender: FDA-Public Use
  Company Number: 2007US002143

PATIENT
  Age: 52 Year
  Sex: Male

DRUGS (16)
  1. AMBISOME [Suspect]
     Indication: FEBRILE NEUTROPENIA
     Dosage: 150 MG, UID/QD, IV DRIP; 250 MG, UID/QD, IV NOS
     Route: 042
     Dates: start: 20070714, end: 20070718
  2. AMBISOME [Suspect]
     Indication: FEBRILE NEUTROPENIA
     Dosage: 150 MG, UID/QD, IV DRIP; 250 MG, UID/QD, IV NOS
     Route: 042
     Dates: start: 20070719
  3. KALETRA [Concomitant]
  4. ZERIT [Concomitant]
  5. EPIVIR [Concomitant]
  6. ITRACONAZOLE [Concomitant]
  7. ZYLORIC [Concomitant]
  8. ACYCLOVIR [Concomitant]
  9. VANCOMYCIN HYDROCHLORIDE [Concomitant]
  10. PLATELETS [Concomitant]
  11. POTASSIUM CHLORIDE [Concomitant]
  12. CEFTAZIDIME [Concomitant]
  13. NEUPOGEN [Concomitant]
  14. RED BLOOD CELL, CONCENTRATED [Concomitant]
  15. AMIKACIN SULFATE [Concomitant]
  16. ZYVOX [Concomitant]

REACTIONS (2)
  - HYPOKALAEMIA [None]
  - RENAL IMPAIRMENT [None]
